FAERS Safety Report 4594117-9 (Version None)
Quarter: 2005Q1

REPORT INFORMATION
  Report Type: 
  Country: None (occurrence: None)
  Receive Date: 20050301
  Receipt Date: 20050217
  Transmission Date: 20050727
  Serious: Yes (Death, Hospitalization)
  Sender: FDA-Public Use
  Company Number: DE-JNJFOC-20050204728

PATIENT
  Sex: Male
  Weight: 120 kg

DRUGS (16)
  1. RISPERDAL CONSTA [Suspect]
     Route: 030
  2. RISPERDAL CONSTA [Suspect]
     Route: 030
  3. RISPERDAL CONSTA [Suspect]
     Indication: SCHIZOPHRENIA
     Route: 030
  4. HALDOL [Suspect]
     Indication: DRUG USE FOR UNKNOWN INDICATION
     Route: 049
  5. FLUANXOL [Suspect]
     Indication: DRUG USE FOR UNKNOWN INDICATION
     Dosage: FLUANXOL DEPOT 10%
  6. RISPERDAL [Concomitant]
     Dosage: 4-5 MG
     Route: 049
  7. RISPERDAL [Concomitant]
     Dosage: 2-4 MG
     Route: 049
  8. LEVOMEPROMAZIN [Concomitant]
  9. AKINETON [Concomitant]
  10. TAVOR [Concomitant]
     Dosage: 0.5-1 MG AS NEEDED
  11. CONCOR [Concomitant]
  12. VESDIL [Concomitant]
  13. NEUROTRAT [Concomitant]
  14. NEUROTRAT [Concomitant]
  15. NEUROTRAT [Concomitant]
  16. NEUROTRAT [Concomitant]

REACTIONS (5)
  - BUNDLE BRANCH BLOCK RIGHT [None]
  - CARDIOMEGALY [None]
  - CONDITION AGGRAVATED [None]
  - DRUG INEFFECTIVE [None]
  - SUDDEN DEATH [None]
